FAERS Safety Report 13302928 (Version 2)
Quarter: 2017Q2

REPORT INFORMATION
  Report Type: Spontaneous
  Country: US (occurrence: US)
  Receive Date: 20170307
  Receipt Date: 20170511
  Transmission Date: 20170830
  Serious: No
  Sender: FDA-Public Use
  Company Number: US-INCYTE CORPORATION-2017IN001470

PATIENT

DRUGS (1)
  1. JAKAFI [Suspect]
     Active Substance: RUXOLITINIB
     Indication: POLYCYTHAEMIA VERA
     Dosage: 10 MG, BID
     Route: 048
     Dates: start: 20170131

REACTIONS (7)
  - Aspartate aminotransferase increased [Unknown]
  - Neutrophil count increased [Recovered/Resolved]
  - Blood urea increased [Unknown]
  - Alanine aminotransferase increased [Unknown]
  - Haematocrit increased [Recovered/Resolved]
  - Lymphocyte count increased [Recovered/Resolved]
  - Blood glucose increased [Unknown]

NARRATIVE: CASE EVENT DATE: 20170217
